FAERS Safety Report 11557450 (Version 1)
Quarter: 2015Q3

REPORT INFORMATION
  Report Type: Spontaneous
  Country: US (occurrence: US)
  Receive Date: 20150925
  Receipt Date: 20150925
  Transmission Date: 20151125
  Serious: Yes (Hospitalization)
  Sender: FDA-Public Use
  Company Number: US-EDGEMONT-2015EDG00033

PATIENT
  Age: 30 Year
  Sex: Female

DRUGS (1)
  1. BUPROPION. [Suspect]
     Active Substance: BUPROPION
     Route: 048

REACTIONS (12)
  - Medication residue present [None]
  - Toxicity to various agents [None]
  - Seizure [Recovered/Resolved]
  - Hypotension [None]
  - Metabolic acidosis [Recovered/Resolved]
  - Cardiotoxicity [Recovering/Resolving]
  - Tachycardia [Recovered/Resolved]
  - Intentional overdose [Recovered/Resolved]
  - Electrocardiogram QT prolonged [Not Recovered/Not Resolved]
  - Mental status changes [Recovered/Resolved]
  - Ventricular tachycardia [None]
  - Generalised tonic-clonic seizure [None]
